FAERS Safety Report 7116008-1 (Version None)
Quarter: 2010Q4

REPORT INFORMATION
  Report Type: 
  Country: None (occurrence: None)
  Receive Date: 20101122
  Receipt Date: 20101117
  Transmission Date: 20110411
  Serious: Yes (Other)
  Sender: FDA-Public Use
  Company Number: JP-PFIZER INC-2010151188

PATIENT
  Age: 20 Year
  Sex: Male

DRUGS (3)
  1. METHOTREXATE SODIUM [Suspect]
     Indication: BONE SARCOMA
     Route: 065
  2. ADRIAMYCIN PFS [Suspect]
  3. CISPLATIN [Suspect]

REACTIONS (1)
  - TOXIC NEUROPATHY [None]
